FAERS Safety Report 5726418-2 (Version None)
Quarter: 2008Q2

REPORT INFORMATION
  Report Type: 
  Country: None (occurrence: None)
  Receive Date: 20080502
  Receipt Date: 20080430
  Transmission Date: 20081010
  Serious: Yes (Other)
  Sender: FDA-Public Use
  Company Number: A0725615A

PATIENT
  Age: 43 Year
  Sex: Male

DRUGS (3)
  1. FLOVENT [Suspect]
     Indication: ASTHMA
     Dosage: 2PUFF TWICE PER DAY
     Route: 055
     Dates: start: 19990101, end: 20080401
  2. ADVAIR HFA [Suspect]
     Indication: ASTHMA
     Dosage: 1PUFF TWICE PER DAY
     Route: 055
     Dates: start: 20070901, end: 20080301
  3. ALBUTEROL [Concomitant]

REACTIONS (5)
  - ASTHMA [None]
  - DRY SKIN [None]
  - ECZEMA [None]
  - RASH PRURITIC [None]
  - SKIN EXFOLIATION [None]
